FAERS Safety Report 9773938 (Version 1)
Quarter: 2013Q4

REPORT INFORMATION
  Report Type: Spontaneous
  Country: VE (occurrence: VE)
  Receive Date: 20131220
  Receipt Date: 20131220
  Transmission Date: 20140711
  Serious: Yes (Other)
  Sender: FDA-Public Use
  Company Number: VE-AMGEN-VENSP2013089469

PATIENT
  Age: 43 Year
  Sex: Female

DRUGS (1)
  1. ENBREL [Suspect]
     Indication: PSORIASIS
     Dosage: 25 MG, 3X/WEEK ALTERNATE DAY
     Route: 058
     Dates: start: 2009

REACTIONS (2)
  - Arthropathy [Recovered/Resolved]
  - Tooth infection [Recovered/Resolved]
